FAERS Safety Report 8934893 (Version 1)
Quarter: 2012Q4

REPORT INFORMATION
  Report Type: 
  Country: US (occurrence: US)
  Receive Date: 20121129
  Receipt Date: 20121129
  Transmission Date: 20130627
  Serious: No
  Sender: FDA-Public Use
  Company Number: US-TARO-2011P1015069

PATIENT
  Age: 48 Year
  Sex: Female
  Weight: 63.5 kg

DRUGS (9)
  1. CARBAMAZEPINE [Suspect]
     Indication: CONVULSION
     Route: 048
     Dates: start: 1994
  2. BACLOFEN [Suspect]
  3. OXYBUTYNIN [Concomitant]
  4. LEVOTHYROXINE [Concomitant]
  5. VENLAFAXINE HCL ER [Concomitant]
  6. ^VITAMIN^ [Concomitant]
  7. MULTIVITAMIN [Concomitant]
  8. VITAMIN D3 [Concomitant]
  9. CRANBERRY PILL [Concomitant]

REACTIONS (1)
  - Hypersensitivity [Unknown]
